FAERS Safety Report 7661763 (Version 2)
Quarter: 2013Q1

REPORT INFORMATION
  Report Type: Spontaneous
  Country: JP (occurrence: JP)
  Receive Date: 20101109
  Receipt Date: 20130306
  Transmission Date: 20140127
  Serious: Yes (Death, Hospitalization, Other)
  Sender: FDA-Public Use
  Company Number: JP-ROCHE-738104

PATIENT
  Age: 73 Year
  Sex: Female
  Weight: 45 kg

DRUGS (13)
  1. AVASTIN [Suspect]
     Indication: COLON CANCER METASTATIC
     Dosage: DOSAGE IS UNCERTAIN.
     Route: 041
     Dates: start: 20090610, end: 2010
  2. ELPLAT [Suspect]
     Indication: COLON CANCER METASTATIC
     Dosage: DOSAGE IS UNCERTAIN
     Route: 041
     Dates: start: 20090610, end: 2009
  3. 5-FU [Concomitant]
     Dosage: DOSAGE IS UNCERTAIN. FOLFOX4
     Route: 041
  4. 5-FU [Concomitant]
     Dosage: DOSAGE IS UNCERTAIN.
     Route: 041
     Dates: start: 20100130, end: 2010
  5. 5-FU [Concomitant]
     Dosage: DOSAGE IS UNCERTAIN.
     Route: 041
  6. LEVOFOLINATE [Concomitant]
     Indication: COLON CANCER METASTATIC
     Dosage: DOSAGE IS UNCERTAIN. FOLFOX4
     Route: 041
     Dates: start: 20090610, end: 2009
  7. LEVOFOLINATE [Concomitant]
     Dosage: FOLFIRI
     Route: 041
     Dates: start: 20100130, end: 2010
  8. LEVOFOLINATE [Concomitant]
     Dosage: FOLFIRI
     Route: 041
  9. IRINOTECAN HYDROCHLORIDE [Concomitant]
     Dosage: DOSAGE IS UNCERTAIN. FOLFIRI
     Route: 041
     Dates: start: 20100130, end: 2010
  10. IRINOTECAN HYDROCHLORIDE [Concomitant]
     Dosage: DOSAGE IS UNCERTAIN.
     Route: 041
  11. 5-FU [Concomitant]
     Indication: COLON CANCER METASTATIC
     Dosage: DOSAGE IS UNCERTAIN. FOLFIRI
     Route: 040
     Dates: start: 20090610, end: 2009
  12. 5-FU [Concomitant]
     Dosage: DOSAGE IS UNCERTAIN.
     Route: 040
     Dates: start: 20100130, end: 2010
  13. 5-FU [Concomitant]
     Dosage: DOSAGE IS UNCERTAIN.
     Route: 040

REACTIONS (13)
  - Colon cancer metastatic [Fatal]
  - Appendicitis [Unknown]
  - Respiratory failure [Unknown]
  - Acute respiratory distress syndrome [Unknown]
  - Wound abscess [Unknown]
  - Abdominal wall abscess [Unknown]
  - Impaired healing [Unknown]
  - White blood cell count decreased [Unknown]
  - Pulmonary oedema [Unknown]
  - Wound decomposition [Unknown]
  - Chills [Unknown]
  - Oropharyngeal discomfort [Unknown]
  - Chills [Unknown]
